FAERS Safety Report 16274482 (Version 4)
Quarter: 2024Q2

REPORT INFORMATION
  Report Type: Spontaneous
  Country: JP (occurrence: JP)
  Receive Date: 20190504
  Receipt Date: 20240520
  Transmission Date: 20240715
  Serious: Yes (Other)
  Sender: FDA-Public Use
  Company Number: JP-ASTELLAS-2019US013889

PATIENT
  Age: 65 Year
  Sex: Female

DRUGS (6)
  1. BENDAMUSTINE HYDROCHLORIDE [Suspect]
     Active Substance: BENDAMUSTINE HYDROCHLORIDE
     Indication: Lymphoma
     Dosage: TIME INTERVAL: CYCLICAL: DOSAGE TEXT:  (CYCLE 1)
     Route: 042
     Dates: start: 201805
  2. BENDAMUSTINE HYDROCHLORIDE [Suspect]
     Active Substance: BENDAMUSTINE HYDROCHLORIDE
     Indication: Lymphoma
     Dosage: TIME INTERVAL: CYCLICAL: DOSAGE TEXT:  (CYCLE 2)
     Route: 042
     Dates: start: 201807
  3. BENDAMUSTINE HYDROCHLORIDE [Suspect]
     Active Substance: BENDAMUSTINE HYDROCHLORIDE
     Indication: Lymphoma
     Dosage: TIME INTERVAL: CYCLICAL: DOSAGE TEXT: 90 MG/M2X1/DAY,
     Route: 042
     Dates: start: 20180920, end: 20180921
  4. RITUXIMAB [Concomitant]
     Active Substance: RITUXIMAB
     Indication: Lymphoma
     Dosage: TIME INTERVAL: CYCLICAL: DOSAGE TEXT:  (CYCLE 1)
     Route: 041
     Dates: start: 201805
  5. RITUXIMAB [Concomitant]
     Active Substance: RITUXIMAB
     Indication: Lymphoma
     Dosage: TIME INTERVAL: CYCLICAL: DOSAGE TEXT:  (CYCLE 2)
     Route: 041
     Dates: start: 201807
  6. RITUXIMAB [Concomitant]
     Active Substance: RITUXIMAB
     Indication: Lymphoma
     Dosage: TIME INTERVAL: CYCLICAL
     Route: 041
     Dates: start: 201809

REACTIONS (6)
  - Colitis ulcerative [Unknown]
  - Campylobacter gastroenteritis [Recovered/Resolved]
  - Pyrexia [Unknown]
  - Diarrhoea [Unknown]
  - Cytomegalovirus enterocolitis [Recovered/Resolved]
  - Product use in unapproved indication [Unknown]

NARRATIVE: CASE EVENT DATE: 20180501
